FAERS Safety Report 14836923 (Version 1)
Quarter: 2018Q2

REPORT INFORMATION
  Report Type: Spontaneous
  Country: FR (occurrence: FR)
  Receive Date: 20180502
  Receipt Date: 20180502
  Transmission Date: 20180711
  Serious: Yes (Other)
  Sender: FDA-Public Use
  Company Number: FR-MERCK KGAA-2046984

PATIENT
  Age: 61 Year
  Sex: Male

DRUGS (1)
  1. NOVOTHYROX [Suspect]
     Active Substance: LEVOTHYROXINE SODIUM
     Indication: AUTOIMMUNE THYROIDITIS

REACTIONS (11)
  - Social problem [None]
  - Dysstasia [None]
  - Fear of disease [None]
  - Fear of falling [None]
  - Vertigo [None]
  - Ataxia [None]
  - Anxiety [None]
  - Tendon disorder [None]
  - Gait disturbance [None]
  - Impaired driving ability [None]
  - Thyroxine increased [None]

NARRATIVE: CASE EVENT DATE: 201708
